FAERS Safety Report 4427257-5 (Version None)
Quarter: 2004Q3

REPORT INFORMATION
  Report Type: 
  Country: None (occurrence: None)
  Receive Date: 20040813
  Receipt Date: 20040813
  Transmission Date: 20050211
  Serious: Yes (Hospitalization)
  Sender: FDA-Public Use
  Company Number: None

PATIENT
  Age: 37 Year
  Sex: Female
  Weight: 65.7716 kg

DRUGS (1)
  1. DOCETAXEL [Suspect]
     Indication: OESOPHAGEAL CARCINOMA
     Dosage: 134 MG IV X 1
     Route: 042
     Dates: start: 20040707

REACTIONS (4)
  - DEHYDRATION [None]
  - PAIN [None]
  - PYREXIA [None]
  - VOMITING [None]
